FAERS Safety Report 4457992-4 (Version None)
Quarter: 2004Q3

REPORT INFORMATION
  Report Type: 
  Country: None (occurrence: None)
  Receive Date: 20040922
  Receipt Date: 20040903
  Transmission Date: 20050211
  Serious: Yes (Hospitalization)
  Sender: FDA-Public Use
  Company Number: EWC010828115

PATIENT
  Age: 71 Year
  Sex: Female
  Weight: 70 kg

DRUGS (5)
  1. PROZAC [Suspect]
     Indication: DEPRESSION
     Dosage: 20 MG/DAY
     Dates: start: 20010730, end: 20010813
  2. TRAZOLAN (TRAZODONE HYDROCHLORIDE) [Concomitant]
  3. LORAZEPAM [Concomitant]
  4. LITHIUM [Concomitant]
  5. MANIPREX (LITHIUM CARBONATE) [Concomitant]

REACTIONS (4)
  - BRADYCARDIA [None]
  - SUPRAVENTRICULAR EXTRASYSTOLES [None]
  - SYNCOPE [None]
  - TACHYCARDIA [None]
